FAERS Safety Report 7196991-9 (Version None)
Quarter: 2010Q4

REPORT INFORMATION
  Report Type: 
  Country: None (occurrence: None)
  Receive Date: 20101224
  Receipt Date: 20101216
  Transmission Date: 20110411
  Serious: Yes (Other)
  Sender: FDA-Public Use
  Company Number: US-PFIZER INC-2010167466

PATIENT
  Sex: Female
  Weight: 68.027 kg

DRUGS (7)
  1. CELEBREX [Suspect]
     Indication: PLANTAR FASCIITIS
     Dosage: 200 MG, 2X/DAY
     Route: 048
     Dates: end: 20100101
  2. ZOLOFT [Suspect]
     Indication: DEPRESSION
     Dosage: 50 MG, 1X/DAY
     Route: 048
     Dates: end: 20100101
  3. LYRICA [Suspect]
     Dosage: UNK
  4. AMLODIPINE/VALSARTAN [Concomitant]
     Dosage: 10 MG, UNK
  5. KLOR-CON [Concomitant]
     Dosage: UNK
  6. TEMAZEPAM [Concomitant]
     Indication: SLEEP DISORDER
  7. FLURAZEPAM [Concomitant]
     Indication: SLEEP DISORDER
     Dosage: 30 MG, UNK

REACTIONS (4)
  - DEPRESSION [None]
  - GAIT DISTURBANCE [None]
  - PAIN IN EXTREMITY [None]
  - VISUAL ACUITY REDUCED [None]
